FAERS Safety Report 14601362 (Version 2)
Quarter: 2018Q1

REPORT INFORMATION
  Report Type: Report from Study
  Country: CA (occurrence: CA)
  Receive Date: 20180305
  Receipt Date: 20180317
  Transmission Date: 20180509
  Serious: Yes (Other)
  Sender: FDA-Public Use
  Company Number: CA-ROCHE-2079428

PATIENT
  Age: 68 Year
  Sex: Female

DRUGS (5)
  1. SYNTHROID [Concomitant]
     Active Substance: LEVOTHYROXINE SODIUM
  2. ACTEMRA [Suspect]
     Active Substance: TOCILIZUMAB
     Indication: RHEUMATOID ARTHRITIS
     Dosage: INFUSION 8
     Route: 042
     Dates: start: 20170719
  3. PREDNISONE. [Concomitant]
     Active Substance: PREDNISONE
  4. PANTOLOC [Concomitant]
     Active Substance: PANTOPRAZOLE SODIUM
  5. MIDODRINE [Concomitant]
     Active Substance: MIDODRINE

REACTIONS (3)
  - Cataract [Recovering/Resolving]
  - Infusion related reaction [Unknown]
  - Fatigue [Unknown]

NARRATIVE: CASE EVENT DATE: 20170719
